FAERS Safety Report 6143149-8 (Version None)
Quarter: 2009Q2

REPORT INFORMATION
  Report Type: 
  Country: None (occurrence: None)
  Receive Date: 20090403
  Receipt Date: 20090324
  Transmission Date: 20091009
  Serious: Yes (Hospitalization)
  Sender: FDA-Public Use
  Company Number: US-ABBOTT-09P-163-0564443-00

PATIENT
  Sex: Female
  Weight: 102.15 kg

DRUGS (21)
  1. TRILIPIX 135MG [Suspect]
     Indication: BLOOD CHOLESTEROL INCREASED
     Route: 048
     Dates: start: 20090212, end: 20090301
  2. TRILIPIX 135MG [Suspect]
     Indication: BLOOD TRIGLYCERIDES INCREASED
  3. TRICOR [Suspect]
     Indication: BLOOD CHOLESTEROL INCREASED
     Route: 048
     Dates: start: 20050701, end: 20090211
  4. TRICOR [Suspect]
     Indication: BLOOD TRIGLYCERIDES INCREASED
  5. HUMULIN INSULIN 7/30 [Concomitant]
     Indication: DIABETES MELLITUS
     Dosage: 30U QAM/15U QPM
     Route: 058
  6. POTASSIUM CHLORIDE [Concomitant]
     Indication: RENAL FAILURE CHRONIC
     Route: 048
  7. BUMEX [Concomitant]
     Indication: RENAL FAILURE CHRONIC
     Route: 048
  8. BUMEX [Concomitant]
  9. ZESTRIL [Concomitant]
     Indication: HYPERTENSION
     Route: 048
  10. HYDRALAZINE HCL [Concomitant]
     Indication: HYPERTENSION
     Route: 048
  11. PRILOSEC [Concomitant]
     Indication: DRUG USE FOR UNKNOWN INDICATION
     Route: 048
  12. METOPROLOL [Concomitant]
     Indication: HYPERTENSION
     Route: 048
  13. ALLOPURINOL [Concomitant]
     Indication: DRUG USE FOR UNKNOWN INDICATION
     Route: 048
  14. ASPIRIN [Concomitant]
     Indication: DRUG USE FOR UNKNOWN INDICATION
     Route: 048
  15. GABAPENTIN [Concomitant]
     Indication: DRUG USE FOR UNKNOWN INDICATION
     Route: 048
  16. RESTORIL [Concomitant]
     Indication: DRUG USE FOR UNKNOWN INDICATION
     Route: 048
  17. AMLODIPINE BESYLATE [Concomitant]
     Indication: HYPERTENSION
  18. PREVACID [Concomitant]
     Indication: DRUG USE FOR UNKNOWN INDICATION
  19. CAPOTEN [Concomitant]
     Indication: HYPERTENSION
  20. TETRACYCLINE [Concomitant]
     Indication: VULVAL ABSCESS
     Route: 048
  21. OMEPRAZOLE [Concomitant]
     Indication: DRUG USE FOR UNKNOWN INDICATION

REACTIONS (8)
  - ABDOMINAL PAIN [None]
  - BACK PAIN [None]
  - BLOOD CHOLESTEROL INCREASED [None]
  - CARBUNCLE [None]
  - CHEST PAIN [None]
  - DRUG INEFFECTIVE [None]
  - MYOPATHY [None]
  - RHABDOMYOLYSIS [None]
